FAERS Safety Report 20041572 (Version 4)
Quarter: 2022Q4

REPORT INFORMATION
  Report Type: Spontaneous
  Country: GB (occurrence: GB)
  Receive Date: 20211108
  Receipt Date: 20221128
  Transmission Date: 20230113
  Serious: Yes (Death, Other)
  Sender: FDA-Public Use
  Company Number: GB-AstraZeneca-2021A786789

PATIENT
  Age: 88 Year
  Sex: Male
  Weight: 92 kg

DRUGS (13)
  1. ACETAMINOPHEN [Suspect]
     Active Substance: ACETAMINOPHEN
     Indication: Product used for unknown indication
     Dosage: 8 DOSAGE FORM, ONCE A DAY(8 DOSAGE FORMS DAILY)
     Route: 065
     Dates: start: 20210122
  2. RAMIPRIL [Suspect]
     Active Substance: RAMIPRIL
     Indication: Blood pressure measurement
     Dosage: 1 DOSAGE FORM, ONCE A DAY(1 DF, DAILY)
     Route: 065
     Dates: start: 20201015
  3. TAMSULOSIN [Suspect]
     Active Substance: TAMSULOSIN
     Indication: Product used for unknown indication
     Dosage: 1 DOSAGE FORM, ONCE A DAY
     Route: 065
     Dates: start: 20210219
  4. CALCIUM CARBONATE\SODIUM ALGINATE\SODIUM BICARBONATE [Suspect]
     Active Substance: CALCIUM CARBONATE\SODIUM ALGINATE\SODIUM BICARBONATE
     Indication: Product used for unknown indication
     Dosage: 40 MILLILITER, ONCE A DAY
     Route: 048
     Dates: start: 20210910
  5. CHOLECALCIFEROL [Suspect]
     Active Substance: CHOLECALCIFEROL
     Indication: Product used for unknown indication
     Dosage: TO BE TAKEN EACH MORNING; ;
     Route: 065
     Dates: start: 20210122
  6. DABIGATRAN ETEXILATE [Suspect]
     Active Substance: DABIGATRAN ETEXILATE
     Indication: Anticoagulant therapy
     Dosage: 2 DOSAGE FORM, ONCE A DAY (1 DF BID, TO THIN BLOOD)
     Route: 065
     Dates: start: 20211015
  7. DILTIAZEM [Suspect]
     Active Substance: DILTIAZEM
     Indication: Product used for unknown indication
     Dosage: 1 DOSAGE FORM, ONCE A DAY(1 DF, DAILY, IN THE MORNING)
     Route: 065
     Dates: start: 20201109
  8. ISOPROPYL MYRISTATE\MINERAL OIL [Suspect]
     Active Substance: ISOPROPYL MYRISTATE\MINERAL OIL
     Indication: Product used for unknown indication
     Dosage: 1 DOSAGE FORM, ONCE A DAY(1 DF, DAILY, APPLY)
     Route: 065
     Dates: start: 20200326
  9. FLUOROURACIL [Suspect]
     Active Substance: FLUOROURACIL
     Indication: Product used for unknown indication
     Dosage: 1 DOSAGE FORM, ONCE A DAY(UNK,APPLY ONCE TO TWICE DAILY FOR 3-4 WEEKS)
     Route: 065
     Dates: start: 20211001
  10. NITROGLYCERIN [Suspect]
     Active Substance: NITROGLYCERIN
     Indication: Product used for unknown indication
     Dosage: 1 DOSAGE FORM (1 DF, PUFF)
     Route: 060
     Dates: start: 20200326
  11. HYDROCORTISONE [Suspect]
     Active Substance: HYDROCORTISONE
     Indication: Product used for unknown indication
     Dosage: 1 DOSAGE FORM, TWO TIMES A DAY(1 DF, BID, APPLY SPARINGLY TO THE AFFECTED AREA)
     Route: 065
     Dates: start: 20211001
  12. OMEPRAZOLE [Suspect]
     Active Substance: OMEPRAZOLE
     Indication: Product used for unknown indication
     Dosage: 10 MILLIGRAM, ONCE A DAY(350 MILLIGRAMS)
     Route: 048
     Dates: start: 20210910, end: 20211015
  13. BENZALKONIUM CHLORIDE\DIMETHICONE\HYDROCORTISONE\NYSTATIN [Suspect]
     Active Substance: BENZALKONIUM CHLORIDE\DIMETHICONE\HYDROCORTISONE\NYSTATIN
     Indication: Skin lesion
     Dosage: 3 DOSAGE FORM, ONCE A DAY(3 DOSAGE FORMS DAILY; APPLY UNTIL THE LESIONS HAVE HEALED)
     Route: 065
     Dates: start: 20210910

REACTIONS (1)
  - Erythema multiforme [Fatal]

NARRATIVE: CASE EVENT DATE: 20211015
